FAERS Safety Report 5104654-6 (Version None)
Quarter: 2006Q3

REPORT INFORMATION
  Report Type: 
  Country: None (occurrence: None)
  Receive Date: 20060911
  Receipt Date: 20060828
  Transmission Date: 20061208
  Serious: Yes (Hospitalization, Other)
  Sender: FDA-Public Use
  Company Number: TAP2006Q01408

PATIENT
  Age: 75 Year
  Sex: Male

DRUGS (8)
  1. LUPRON DEPOT-3 [Suspect]
     Indication: PROSTATE CANCER
     Dosage: 22.5 MG (22.5 MG, 1 IN 3 M) INTRAMUSCULAR
     Route: 030
     Dates: start: 20020814
  2. METFORMIN HCL [Concomitant]
  3. GLYBURIDE [Concomitant]
  4. ACCUPRIL [Concomitant]
  5. COUMADIN [Concomitant]
  6. FUROSEMIDE [Concomitant]
  7. TYLENOL W/ CODEINE NO. 3 [Concomitant]
  8. ACETAMINOPHEN [Concomitant]

REACTIONS (3)
  - GANGRENE [None]
  - LEG AMPUTATION [None]
  - LOCALISED INFECTION [None]
